FAERS Safety Report 9375545 (Version 3)
Quarter: 2013Q3

REPORT INFORMATION
  Report Type: Spontaneous
  Country: JP (occurrence: JP)
  Receive Date: 20130628
  Receipt Date: 20130730
  Transmission Date: 20140515
  Serious: Yes (Other)
  Sender: FDA-Public Use
  Company Number: JP-UCBSA-090133

PATIENT
  Age: 66 Year
  Sex: Female
  Weight: 47 kg

DRUGS (3)
  1. E KEPPRA [Suspect]
     Indication: EPILEPSY
     Route: 048
     Dates: start: 20130507, end: 20130531
  2. EXCEGRAN [Concomitant]
     Indication: EPILEPSY
     Dosage: DAILY DOSE: 200 MG
     Route: 048
     Dates: start: 20110814
  3. MICARDIS [Concomitant]
     Indication: HYPERTENSION
     Dosage: DAILY DOSE: 40 MG
     Route: 048
     Dates: start: 20100512

REACTIONS (1)
  - Blood creatine phosphokinase increased [Recovered/Resolved]
